FAERS Safety Report 7650663-2 (Version None)
Quarter: 2011Q3

REPORT INFORMATION
  Report Type: 
  Country: None (occurrence: None)
  Receive Date: 20110802
  Receipt Date: 20110729
  Transmission Date: 20111222
  Serious: Yes (Death, Other)
  Sender: FDA-Public Use
  Company Number: PHHY2011TW68616

PATIENT
  Age: 74 Year
  Sex: Male

DRUGS (2)
  1. IRINOTECAN HCL [Suspect]
     Indication: METASTASES TO LUNG
     Dosage: 80 MG/M2, WEEKLY
     Dates: start: 20050301
  2. HEMODIALYSIS [Concomitant]

REACTIONS (4)
  - RENAL FAILURE [None]
  - TOXICITY TO VARIOUS AGENTS [None]
  - SEPTIC SHOCK [None]
  - FEBRILE NEUTROPENIA [None]
